FAERS Safety Report 6459979-9 (Version None)
Quarter: 2009Q4

REPORT INFORMATION
  Report Type: 
  Country: None (occurrence: None)
  Receive Date: 20091129
  Receipt Date: 20091117
  Transmission Date: 20100525
  Serious: Yes (Other)
  Sender: FDA-Public Use
  Company Number: PHEH2009US16236

PATIENT
  Sex: Male

DRUGS (1)
  1. EXJADE [Suspect]
     Indication: BLOOD DISORDER
     Dosage: 2000 MG, QD
     Route: 048

REACTIONS (5)
  - AMNESIA [None]
  - DIZZINESS [None]
  - HEARING IMPAIRED [None]
  - NAUSEA [None]
  - VISUAL IMPAIRMENT [None]
